FAERS Safety Report 16086469 (Version 1)
Quarter: 2019Q1

REPORT INFORMATION
  Report Type: Spontaneous
  Country: DE (occurrence: DE)
  Receive Date: 20190318
  Receipt Date: 20190318
  Transmission Date: 20190418
  Serious: Yes (Hospitalization, Other)
  Sender: FDA-Public Use
  Company Number: DE-ELI_LILLY_AND_COMPANY-DE201903005928

PATIENT
  Age: 67 Year
  Sex: Male

DRUGS (4)
  1. FRAXIPARINE [Suspect]
     Active Substance: NADROPARIN CALCIUM
     Indication: PRODUCT USED FOR UNKNOWN INDICATION
     Dosage: UNK, UNKNOWN
     Route: 058
     Dates: start: 20020314, end: 20020326
  2. ORFIRIL [Suspect]
     Active Substance: VALPROATE SODIUM
     Indication: BIPOLAR I DISORDER
     Dosage: UNK, UNKNOWN
     Route: 048
     Dates: start: 20020314, end: 20020326
  3. AUGMENTIN [Suspect]
     Active Substance: AMOXICILLIN\CLAVULANATE POTASSIUM
     Indication: PAROTITIS
     Dosage: UNK UNK, UNKNOWN
     Route: 048
     Dates: start: 20020322
  4. ZYPREXA [Suspect]
     Active Substance: OLANZAPINE
     Indication: BIPOLAR I DISORDER
     Dosage: UNK UNK, UNKNOWN
     Route: 048
     Dates: start: 20020314, end: 20020326

REACTIONS (3)
  - Thrombocytopenia [Unknown]
  - Petechiae [Unknown]
  - Mouth haemorrhage [Unknown]

NARRATIVE: CASE EVENT DATE: 20020323
